FAERS Safety Report 7016730-1 (Version None)
Quarter: 2010Q3

REPORT INFORMATION
  Report Type: 
  Country: None (occurrence: None)
  Receive Date: 20100909
  Receipt Date: 20100602
  Transmission Date: 20110219
  Serious: Yes (Other)
  Sender: FDA-Public Use
  Company Number: 2010SP026101

PATIENT
  Age: 59 Year
  Sex: Female

DRUGS (5)
  1. SAPHRIS [Suspect]
     Indication: BIPOLAR DISORDER
     Dosage: 5 MG ; QD ; SL
     Route: 060
  2. SEROQUEL [Concomitant]
  3. LAMICTAL [Concomitant]
  4. PROZAC [Concomitant]
  5. TRAZODONE [Concomitant]

REACTIONS (2)
  - AKATHISIA [None]
  - INCREASED APPETITE [None]
